FAERS Safety Report 11427593 (Version 1)
Quarter: 2015Q3

REPORT INFORMATION
  Report Type: Spontaneous
  Country: US (occurrence: US)
  Receive Date: 20150827
  Receipt Date: 20150827
  Transmission Date: 20151125
  Serious: No
  Sender: FDA-Public Use
  Company Number: US-SA-2015SA074229

PATIENT
  Sex: Female

DRUGS (1)
  1. AVAPRO [Suspect]
     Active Substance: IRBESARTAN
     Indication: PROPHYLAXIS
     Dosage: DOSE: HALF OF 75MG TABLET
     Route: 065

REACTIONS (1)
  - Blood glucose increased [Unknown]
